FAERS Safety Report 6541451-9 (Version None)
Quarter: 2010Q1

REPORT INFORMATION
  Report Type: 
  Country: None (occurrence: None)
  Receive Date: 20100118
  Receipt Date: 20100111
  Transmission Date: 20100710
  Serious: Yes (Life-Threatening, Hospitalization, Other)
  Sender: FDA-Public Use
  Company Number: PHHY2010CA00900

PATIENT
  Sex: Female

DRUGS (3)
  1. CLOZARIL [Suspect]
     Indication: BIPOLAR DISORDER
     Dosage: 600 MG
     Route: 048
     Dates: start: 20091016, end: 20091229
  2. EPIVAL [Concomitant]
  3. SEROQUEL [Concomitant]

REACTIONS (5)
  - DELIRIUM [None]
  - HYPOTENSION [None]
  - PNEUMONIA ASPIRATION [None]
  - SEPSIS [None]
  - URINARY TRACT INFECTION [None]
